FAERS Safety Report 17591245 (Version 1)
Quarter: 2020Q1

REPORT INFORMATION
  Report Type: Spontaneous
  Country: ES (occurrence: ES)
  Receive Date: 20200325
  Receipt Date: 20200325
  Transmission Date: 20200409
  Serious: Yes (Disabling)
  Sender: FDA-Public Use
  Company Number: None

PATIENT
  Age: 39 Year
  Sex: Female

DRUGS (1)
  1. CIPROFLOXACINO [Suspect]
     Active Substance: CIPROFLOXACIN HYDROCHLORIDE
     Indication: SINUSITIS
     Dosage: ?          QUANTITY:8 DF DOSAGE FORM;?
     Route: 048
     Dates: start: 20200214, end: 20200221

REACTIONS (3)
  - Fear [None]
  - Bone pain [None]
  - Vision blurred [None]

NARRATIVE: CASE EVENT DATE: 20200313
